FAERS Safety Report 12955942 (Version 1)
Quarter: 2016Q4

REPORT INFORMATION
  Report Type: Spontaneous
  Country: US (occurrence: US)
  Receive Date: 20161118
  Receipt Date: 20161118
  Transmission Date: 20170207
  Serious: Yes (Death)
  Sender: FDA-Public Use
  Company Number: US-PINNACLE BIOLOGICS INC-PIN-2016-00057

PATIENT
  Age: 60 Year
  Sex: Male

DRUGS (1)
  1. PHOTOFRIN [Suspect]
     Active Substance: PORFIMER SODIUM
     Indication: PRODUCT USED FOR UNKNOWN INDICATION
     Route: 065
     Dates: start: 20161017, end: 20161017

REACTIONS (1)
  - Death [None]

NARRATIVE: CASE EVENT DATE: 20161103
